FAERS Safety Report 11590366 (Version 2)
Quarter: 2015Q4

REPORT INFORMATION
  Report Type: Report from Study
  Country: AU (occurrence: AU)
  Receive Date: 20151002
  Receipt Date: 20151021
  Transmission Date: 20160304
  Serious: Yes (Hospitalization)
  Sender: FDA-Public Use
  Company Number: AU-ABBVIE-15P-008-1463335-00

PATIENT
  Age: 77 Year
  Sex: Female

DRUGS (1)
  1. DUODOPA [Suspect]
     Active Substance: CARBIDOPA\LEVODOPA
     Indication: PARKINSON^S DISEASE
     Dosage: CONTINUOUS INFUSION
     Route: 050
     Dates: start: 20150907

REACTIONS (16)
  - Lethargy [Not Recovered/Not Resolved]
  - Somnolence [Unknown]
  - Fatigue [Unknown]
  - Mobility decreased [Unknown]
  - Dizziness [Unknown]
  - Balance disorder [Unknown]
  - Infection [Unknown]
  - Wound infection staphylococcal [Unknown]
  - Arthritis infective [Unknown]
  - Wound secretion [Unknown]
  - Wound [Unknown]
  - Stoma site discharge [Unknown]
  - Feeling abnormal [Unknown]
  - Hip arthroplasty [Unknown]
  - Gait disturbance [Unknown]
  - Stoma site erythema [Unknown]

NARRATIVE: CASE EVENT DATE: 201509
